FAERS Safety Report 19245638 (Version 1)
Quarter: 2021Q2

REPORT INFORMATION
  Report Type: Spontaneous
  Country: TR (occurrence: TR)
  Receive Date: 20210512
  Receipt Date: 20210512
  Transmission Date: 20210717
  Serious: Yes (Other)
  Sender: FDA-Public Use
  Company Number: TR-AMGEN-TURSP2021069086

PATIENT
  Age: 11 Year
  Sex: Female

DRUGS (7)
  1. FILGRASTIM [Suspect]
     Active Substance: FILGRASTIM
     Indication: INFANTILE GENETIC AGRANULOCYTOSIS
     Dosage: 10 MICROGRAM/KILOGRAM
     Route: 065
  2. CYCLOSPORINE. [Concomitant]
     Active Substance: CYCLOSPORINE
     Dosage: UNK
  3. CYCLOPHOSPHAMIDE. [Concomitant]
     Active Substance: CYCLOPHOSPHAMIDE
     Indication: PROPHYLAXIS
     Dosage: UNK
  4. TREOSULFAN [Concomitant]
     Active Substance: TREOSULFAN
     Dosage: UNK
  5. FLUDARABINE [Concomitant]
     Active Substance: FLUDARABINE PHOSPHATE
     Dosage: UNK
  6. THYMOGLOBULIN [Concomitant]
     Active Substance: LAPINE T-LYMPHOCYTE IMMUNE GLOBULIN
     Dosage: UNK
  7. MYCOPHENOLATE MOFETIL. [Concomitant]
     Active Substance: MYCOPHENOLATE MOFETIL
     Indication: PROPHYLAXIS
     Dosage: UNK

REACTIONS (14)
  - Colitis [Unknown]
  - Myelodysplastic syndrome [Unknown]
  - Gingivitis [Unknown]
  - Diarrhoea haemorrhagic [Recovering/Resolving]
  - Acute graft versus host disease [Recovering/Resolving]
  - Pneumonia fungal [Unknown]
  - Therapy non-responder [Unknown]
  - Ear infection [Unknown]
  - BK polyomavirus test positive [Unknown]
  - Haematuria [Unknown]
  - Osteoporosis [Unknown]
  - Neutrophil count abnormal [Unknown]
  - Diarrhoea [Unknown]
  - Pneumonia [Unknown]
